FAERS Safety Report 4906430-3 (Version None)
Quarter: 2006Q1

REPORT INFORMATION
  Report Type: 
  Country: None (occurrence: None)
  Receive Date: 20060206
  Receipt Date: 20060127
  Transmission Date: 20060701
  Serious: Yes (Hospitalization)
  Sender: FDA-Public Use
  Company Number: 2006-01-1908

PATIENT
  Sex: Male

DRUGS (1)
  1. PEG-INTRON (PEGINTERFERON ALFA-2B) INJECTABLE [Suspect]

REACTIONS (2)
  - BLOOD SODIUM DECREASED [None]
  - NUTRITIONAL CONDITION ABNORMAL [None]
